FAERS Safety Report 9267424 (Version 1)
Quarter: 2013Q2

REPORT INFORMATION
  Report Type: Spontaneous
  Country: FR (occurrence: FR)
  Receive Date: 20130502
  Receipt Date: 20130502
  Transmission Date: 20140414
  Serious: Yes (Death, Hospitalization)
  Sender: FDA-Public Use
  Company Number: FR-JNJFOC-20130414427

PATIENT
  Sex: 0

DRUGS (3)
  1. LEVOFLOXACIN [Suspect]
     Indication: INFECTION PROPHYLAXIS
     Dosage: ONSET OF THE FIRST CYCLE, AND PLANNED FOR THE FIRST 6 CYCLES
     Route: 065
  2. POSACONAZOLE [Suspect]
     Indication: INFECTION PROPHYLAXIS
     Dosage: ONSET OF THE FIRST CYCLE, AND PLANNED FOR THE FIRST 6 CYCLES
     Route: 065
  3. AZACITIDINE [Suspect]
     Indication: MYELODYSPLASTIC SYNDROME
     Dosage: FOR 7 DAYS EVERY 4 WEEKS
     Route: 065

REACTIONS (2)
  - Sepsis [Fatal]
  - Infection [Fatal]
